FAERS Safety Report 8361938-6 (Version None)
Quarter: 2012Q2

REPORT INFORMATION
  Report Type: 
  Country: None (occurrence: None)
  Receive Date: 20120515
  Receipt Date: 20120509
  Transmission Date: 20120825
  Serious: Yes (Other)
  Sender: FDA-Public Use
  Company Number: US-CELGENEUS-163-21880-12042789

PATIENT
  Sex: Female
  Weight: 87.168 kg

DRUGS (14)
  1. LEVOTHYROXINE SODIUM [Concomitant]
     Dosage: .25 MICROGRAM
     Route: 048
  2. MINOCYCLINE HCL [Concomitant]
     Dosage: 100 MILLIGRAM
     Route: 048
  3. LORAZEPAM [Concomitant]
     Route: 065
  4. POTASSIUM CHLORIDE [Concomitant]
     Dosage: 20 MILLIEQUIVALENTS
     Route: 048
     Dates: start: 20110923
  5. REVLIMID [Suspect]
     Dosage: 10 MILLIGRAM
     Route: 048
     Dates: start: 20120201
  6. PRILOSEC [Concomitant]
     Dosage: 20 MILLIGRAM
     Route: 048
     Dates: start: 20120326
  7. FAMOTIDINE [Concomitant]
     Dosage: 40 MILLIGRAM
     Route: 048
     Dates: start: 20120210
  8. WELLBUTRIN [Concomitant]
     Dosage: 300 MILLIGRAM
     Route: 048
  9. REVLIMID [Suspect]
     Dosage: 5 MILLIGRAM
     Route: 048
     Dates: start: 20120420, end: 20120420
  10. DETROL LA [Concomitant]
     Dosage: 4 MILLIGRAM
     Route: 048
  11. ALLOPURINOL [Concomitant]
     Dosage: 200 MILLIGRAM
     Route: 048
     Dates: start: 20090727
  12. HYDROCHLOROTHIAZIDE [Concomitant]
     Dosage: 25 MILLIGRAM
     Route: 048
     Dates: start: 20110630
  13. BUPROPION HCL [Concomitant]
     Dosage: 300 MILLIGRAM
     Route: 048
  14. POTASSIUM CHLORIDE [Concomitant]
     Dosage: 20 MILLIEQUIVALENTS
     Route: 041
     Dates: start: 20120420, end: 20120420

REACTIONS (5)
  - HYPOKALAEMIA [None]
  - DYSPNOEA [None]
  - ANAEMIA [None]
  - THROMBOCYTOPENIA [None]
  - ELECTROCARDIOGRAM QT PROLONGED [None]
